FAERS Safety Report 7956519-X (Version None)
Quarter: 2011Q4

REPORT INFORMATION
  Report Type: 
  Country: None (occurrence: None)
  Receive Date: 20111201
  Receipt Date: 20111124
  Transmission Date: 20120403
  Serious: Yes (Other)
  Sender: FDA-Public Use
  Company Number: AUR-APL-2011-04290

PATIENT
  Age: 61 Year
  Sex: Female

DRUGS (14)
  1. DILTIAZEM HYDROCHLORIDE [Suspect]
     Indication: PRODUCT USED FOR UNKNOWN INDICATION
     Dosage: (200 MG, 1 D), ORAL
     Route: 048
     Dates: start: 20101006, end: 20101104
  2. BENDROFLUMETHIAZIDE (BENDROFLUMETHIAZIDE) [Concomitant]
  3. LOSARTAN POTASSIUM [Concomitant]
  4. CHAPARRAL DANDELION BLEND (CHAPARRAL DANDELION BLEND) [Concomitant]
  5. MEBEVERINE (MEBEVERINE) [Concomitant]
  6. DILTIAZEM [Suspect]
     Indication: PRODUCT USED FOR UNKNOWN INDICATION
     Dosage: (200 MG), ORAL
     Route: 048
     Dates: end: 20101006
  7. INDAPAMIDE [Concomitant]
  8. BISOPROLOL FUMARATE [Suspect]
     Indication: PRODUCT USED FOR UNKNOWN INDICATION
     Dates: start: 20101001, end: 20101006
  9. SOTALOL HCL [Concomitant]
  10. RAMIPRIL [Suspect]
     Indication: BLOOD PRESSURE
     Dosage: (2.5 MG),
     Dates: start: 20101206, end: 20101216
  11. ASPIRIN [Concomitant]
  12. DANDELION (TARAXACUM OFFICINALE) [Concomitant]
  13. HERBAL MEDICATION (HERBALIFE PRODUCTS) [Concomitant]
  14. SIMVASTATIN [Concomitant]

REACTIONS (7)
  - BLOOD PRESSURE INCREASED [None]
  - VISUAL IMPAIRMENT [None]
  - CONDITION AGGRAVATED [None]
  - DRUG HYPERSENSITIVITY [None]
  - MIGRAINE [None]
  - CEREBRAL HAEMATOMA [None]
  - VISION BLURRED [None]
